FAERS Safety Report 4269256-2 (Version None)
Quarter: 2004Q1

REPORT INFORMATION
  Report Type: 
  Country: None (occurrence: None)
  Receive Date: 20040109
  Receipt Date: 20031229
  Transmission Date: 20041129
  Serious: Yes (Hospitalization)
  Sender: FDA-Public Use
  Company Number: US-JNJFOC-20031205542

PATIENT
  Age: 61 Year
  Sex: Female

DRUGS (16)
  1. INFLIXIMAB (INFLIXIMAB, RECOMBINANT) LYOPHILIZED POWDER [Suspect]
     Indication: RHEUMATOID ARTHRITIS
     Dosage: INTRAVENOUS
     Route: 042
     Dates: start: 20010301
  2. PREDNISONE [Concomitant]
  3. PREVACID (WARFARIN SODIUM) [Concomitant]
  4. ZOLOFT [Concomitant]
  5. LASIX [Concomitant]
  6. K-DUR 10 [Concomitant]
  7. FOLIC ACID [Concomitant]
  8. VALIUM [Concomitant]
  9. OXYCONTIN [Concomitant]
  10. TEMAZEPAM [Concomitant]
  11. ENBREL [Concomitant]
  12. LEVOXYL [Concomitant]
  13. MULTIVITAMIN (MULTIVITAMINS) [Concomitant]
  14. CALCIUM (CALCIUM) [Concomitant]
  15. B12 (CYANOCOBALAMIN) [Concomitant]
  16. COUMADIN [Concomitant]

REACTIONS (7)
  - CEREBRAL HAEMORRHAGE [None]
  - CONVULSION [None]
  - DIALYSIS [None]
  - HYPERTENSIVE NEPHROPATHY [None]
  - MENTAL STATUS CHANGES [None]
  - RENAL FAILURE [None]
  - RENAL TUBULAR NECROSIS [None]
